FAERS Safety Report 8329629-5 (Version None)
Quarter: 2012Q2

REPORT INFORMATION
  Report Type: 
  Country: None (occurrence: None)
  Receive Date: 20120502
  Receipt Date: 20090925
  Transmission Date: 20120825
  Serious: No
  Sender: FDA-Public Use
  Company Number: US-TEVA-2009010786

PATIENT
  Sex: Male
  Weight: 102.15 kg

DRUGS (10)
  1. LOPID [Concomitant]
  2. TRICOR [Concomitant]
  3. LEVOXYL [Concomitant]
  4. NUVIGIL [Suspect]
     Indication: SLEEP APNOEA SYNDROME
     Dosage: 250 MILLIGRAM;
     Route: 048
     Dates: start: 20090601
  5. TEKTURNA [Concomitant]
  6. PLAVIX [Concomitant]
  7. NUVIGIL [Suspect]
     Dosage: 500 MILLIGRAM;
     Route: 048
     Dates: end: 20090923
  8. METHADONE HCL [Concomitant]
  9. ASPIRIN [Concomitant]
  10. PROVIGIL [Concomitant]
     Dosage: 200 MILLIGRAM;

REACTIONS (3)
  - DRUG PRESCRIBING ERROR [None]
  - DRUG EFFECT DELAYED [None]
  - DRUG INEFFECTIVE [None]
